FAERS Safety Report 16744114 (Version 1)
Quarter: 2019Q3

REPORT INFORMATION
  Report Type: Spontaneous
  Country: PL (occurrence: PL)
  Receive Date: 20190827
  Receipt Date: 20190827
  Transmission Date: 20191005
  Serious: Yes (Death)
  Sender: FDA-Public Use
  Company Number: PL-TEVA-2019-PL-1098332

PATIENT
  Age: 67 Year
  Sex: Female

DRUGS (7)
  1. FENTANYL. [Concomitant]
     Active Substance: FENTANYL
     Route: 065
  2. GEMCITABINE. [Suspect]
     Active Substance: GEMCITABINE
     Indication: GALLBLADDER ADENOCARCINOMA
     Dosage: ON DAY 1 AND 8
     Route: 042
  3. CISPLATIN. [Suspect]
     Active Substance: CISPLATIN
     Indication: GALLBLADDER ADENOCARCINOMA
     Dosage: ON DAY 1
     Route: 042
  4. ACETAMINOPHEN. [Concomitant]
     Active Substance: ACETAMINOPHEN
     Dosage: 1500 MILLIGRAM DAILY;
     Route: 048
  5. MORPHINE [Suspect]
     Active Substance: MORPHINE
     Indication: PALLIATIVE CARE
     Dosage: 20 MILLIGRAM DAILY;
     Route: 065
  6. HYDROCORTISONE. [Suspect]
     Active Substance: HYDROCORTISONE
     Indication: TOXICITY TO VARIOUS AGENTS
     Route: 065
  7. ENALAPRIL [Concomitant]
     Active Substance: ENALAPRIL
     Indication: HYPERTENSION
     Dosage: 10 MILLIGRAM DAILY;
     Route: 065

REACTIONS (12)
  - Drug ineffective [Fatal]
  - Cardiopulmonary failure [Fatal]
  - Aspartate aminotransferase increased [Fatal]
  - Blood bilirubin increased [Fatal]
  - Asthenia [Fatal]
  - Abdominal pain upper [Fatal]
  - Hypotension [Fatal]
  - Neutropenia [Fatal]
  - Alanine aminotransferase increased [Fatal]
  - Leukopenia [Fatal]
  - Anaemia [Fatal]
  - Toxicity to various agents [Fatal]
